FAERS Safety Report 11024854 (Version 1)
Quarter: 2015Q2

REPORT INFORMATION
  Report Type: Spontaneous
  Country: US (occurrence: US)
  Receive Date: 20150414
  Receipt Date: 20150414
  Transmission Date: 20150821
  Serious: Yes (Hospitalization, Other)
  Sender: FDA-Public Use
  Company Number: US-AMGEN-USASP2015035167

PATIENT
  Age: 76 Year
  Sex: Female

DRUGS (1)
  1. ENBREL [Suspect]
     Active Substance: ETANERCEPT
     Indication: RHEUMATOID ARTHRITIS
     Dosage: UNK MG, QWK
     Route: 065
     Dates: start: 20130530

REACTIONS (9)
  - Paraesthesia [Recovered/Resolved]
  - Spinal laminectomy [Recovered/Resolved]
  - Fall [Recovered/Resolved]
  - Hemiplegia [Recovered/Resolved]
  - Pneumonia [Recovered/Resolved]
  - Malaise [Unknown]
  - Tachycardia [Unknown]
  - Injury [Recovered/Resolved]
  - Pain in extremity [Recovered/Resolved]

NARRATIVE: CASE EVENT DATE: 2014
